FAERS Safety Report 25096979 (Version 1)
Quarter: 2025Q1

REPORT INFORMATION
  Report Type: Spontaneous
  Country: CN (occurrence: CN)
  Receive Date: 20250319
  Receipt Date: 20250319
  Transmission Date: 20250409
  Serious: Yes (Other)
  Sender: JOHNSON AND JOHNSON
  Company Number: CN-BAYER-2025A036156

PATIENT
  Age: 54 Year
  Sex: Male

DRUGS (1)
  1. RIVAROXABAN [Suspect]
     Active Substance: RIVAROXABAN
     Indication: Anticoagulant therapy
     Dosage: 20 MG, QD, IRREGULARLY
     Route: 048

REACTIONS (3)
  - Haemorrhage intracranial [Unknown]
  - Intracranial pressure increased [Unknown]
  - Treatment noncompliance [Unknown]
